FAERS Safety Report 6320893-0 (Version None)
Quarter: 2009Q3

REPORT INFORMATION
  Report Type: 
  Country: None (occurrence: None)
  Receive Date: 20090822
  Receipt Date: 20081214
  Transmission Date: 20100115
  Serious: No
  Sender: FDA-Public Use
  Company Number: US-ABBOTT-08P-163-0493670-00

PATIENT
  Sex: Female

DRUGS (3)
  1. NIASPAN [Suspect]
     Indication: BLOOD CHOLESTEROL INCREASED
     Route: 048
     Dates: start: 20081126
  2. AVONEX [Concomitant]
     Indication: MULTIPLE SCLEROSIS
  3. NAPROSYN [Concomitant]
     Indication: PROPHYLAXIS

REACTIONS (7)
  - ERYTHEMA [None]
  - FLUSHING [None]
  - HOT FLUSH [None]
  - NAUSEA [None]
  - PRESYNCOPE [None]
  - SKIN TIGHTNESS [None]
  - SWELLING FACE [None]
